FAERS Safety Report 6699749-X (Version None)
Quarter: 2010Q2

REPORT INFORMATION
  Report Type: 
  Country: None (occurrence: None)
  Receive Date: 20100427
  Receipt Date: 20100427
  Transmission Date: 20101027
  Serious: Yes (Disabling, Other)
  Sender: FDA-Public Use
  Company Number: None

PATIENT
  Age: 69 Year
  Sex: Female
  Weight: 88.4514 kg

DRUGS (2)
  1. DEPO-MEDROL [Suspect]
     Indication: ARTHRITIS
     Dosage: TWO TIMES KNEE
     Dates: start: 20071201
  2. DEPO-MEDROL [Suspect]
     Indication: ARTHRITIS
     Dosage: TWO TIMES KNEE
     Dates: start: 20080401

REACTIONS (4)
  - ARRHYTHMIA [None]
  - HYPERTENSION [None]
  - PAIN IN EXTREMITY [None]
  - TENDONITIS [None]
